FAERS Safety Report 19419789 (Version 1)
Quarter: 2021Q2

REPORT INFORMATION
  Report Type: Spontaneous
  Country: US (occurrence: US)
  Receive Date: 20210615
  Receipt Date: 20210615
  Transmission Date: 20210717
  Serious: Yes (Other)
  Sender: FDA-Public Use
  Company Number: US-PFIZER INC-2021644730

PATIENT
  Age: 54 Year
  Sex: Female

DRUGS (1)
  1. ADRIAMYCIN [Suspect]
     Active Substance: DOXORUBICIN HYDROCHLORIDE

REACTIONS (6)
  - Pain in extremity [Unknown]
  - Fatigue [Unknown]
  - Neuropathy peripheral [Unknown]
  - Dysstasia [Unknown]
  - Weight increased [Unknown]
  - Alopecia [Unknown]
